FAERS Safety Report 7930186-3 (Version None)
Quarter: 2011Q4

REPORT INFORMATION
  Report Type: 
  Country: None (occurrence: None)
  Receive Date: 20111108
  Receipt Date: 20110505
  Transmission Date: 20120403
  Serious: Yes (Hospitalization)
  Sender: FDA-Public Use
  Company Number: PHHY2011US38934

PATIENT

DRUGS (1)
  1. ZOMETA [Suspect]

REACTIONS (1)
  - RENAL FAILURE [None]
